FAERS Safety Report 16498092 (Version 1)
Quarter: 2019Q2

REPORT INFORMATION
  Report Type: Report from Study
  Country: MX (occurrence: MX)
  Receive Date: 20190628
  Receipt Date: 20190628
  Transmission Date: 20190711
  Serious: Yes (Other)
  Sender: FDA-Public Use
  Company Number: PHHY2019MX149445

PATIENT
  Age: 56 Year
  Sex: Male
  Weight: 54 kg

DRUGS (1)
  1. TEGRETOL [Suspect]
     Active Substance: CARBAMAZEPINE
     Indication: EPILEPSY
     Dosage: 2 DF, BID (IN THE MORNING AND AT NIGHT)
     Route: 048

REACTIONS (7)
  - Head injury [Unknown]
  - Speech disorder [Not Recovered/Not Resolved]
  - Seizure [Unknown]
  - Joint injury [Unknown]
  - Weight decreased [Unknown]
  - Fall [Unknown]
  - Intellectual disability [Unknown]

NARRATIVE: CASE EVENT DATE: 201811
